FAERS Safety Report 4628015-9 (Version None)
Quarter: 2005Q2

REPORT INFORMATION
  Report Type: 
  Country: None (occurrence: None)
  Receive Date: 20050401
  Receipt Date: 20050323
  Transmission Date: 20051028
  Serious: Yes (Hospitalization)
  Sender: FDA-Public Use
  Company Number: GXKR2005SE00827

PATIENT
  Age: 55 Year
  Sex: Male

DRUGS (6)
  1. TRAMADOL (NGX)(TRAMADOL) UNKNOWN [Suspect]
     Indication: PAIN
     Dosage: 2-3 TIMES 50 00 MG DAILY
  2. ENALAPRIL MALEATE [Suspect]
     Indication: HYPERTENSION
     Dosage: 20 MG, BID
  3. SOTALOL HCL [Concomitant]
  4. BENDROFLUMETHIAZIDE W/POTASSIUM CHLORIDE(BENDROFLUMETHIAZIDE, POTASSIU [Concomitant]
  5. TERBUTALINE SULFATE [Concomitant]
  6. BUDESONIDE [Concomitant]

REACTIONS (5)
  - ANGIONEUROTIC OEDEMA [None]
  - ANXIETY [None]
  - DRUG INTERACTION [None]
  - HYPERHIDROSIS [None]
  - SWOLLEN TONGUE [None]
